FAERS Safety Report 19499730 (Version 1)
Quarter: 2021Q3

REPORT INFORMATION
  Report Type: Other
  Country: US (occurrence: US)
  Receive Date: 20210706
  Receipt Date: 20210706
  Transmission Date: 20211014
  Serious: Yes (Other)
  Sender: FDA-Public Use
  Company Number: US-THE PROACTIV LLC-2113513

PATIENT
  Age: 78 Year
  Sex: Female

DRUGS (1)
  1. SALICYLIC ACID\SULFUR [Suspect]
     Active Substance: SALICYLIC ACID\SULFUR
     Route: 061

REACTIONS (1)
  - Analgesic drug level increased [Unknown]
